FAERS Safety Report 19552108 (Version 1)
Quarter: 2021Q3

REPORT INFORMATION
  Report Type: Spontaneous
  Country: US (occurrence: US)
  Receive Date: 20210715
  Receipt Date: 20210715
  Transmission Date: 20211014
  Serious: Yes (Death)
  Sender: FDA-Public Use
  Company Number: US-SPECGX-T202101652

PATIENT
  Age: 20 Year
  Sex: Male

DRUGS (1)
  1. FENTANYL CITRATE. [Suspect]
     Active Substance: FENTANYL CITRATE
     Indication: PRODUCT USED FOR UNKNOWN INDICATION
     Dosage: UNK
     Route: 065

REACTIONS (10)
  - Toxicity to various agents [Fatal]
  - Myocardial ischaemia [Fatal]
  - Acute kidney injury [Fatal]
  - Coma [Fatal]
  - Acute lung injury [Fatal]
  - Respiratory depression [Fatal]
  - Hypotension [Fatal]
  - Metabolic acidosis [Fatal]
  - Anion gap [Fatal]
  - Ventricular arrhythmia [Fatal]
